FAERS Safety Report 18526381 (Version 1)
Quarter: 2020Q4

REPORT INFORMATION
  Report Type: Spontaneous
  Country: IT (occurrence: IT)
  Receive Date: 20201120
  Receipt Date: 20201120
  Transmission Date: 20210114
  Serious: Yes (Hospitalization)
  Sender: FDA-Public Use
  Company Number: IT-TEVA-2020-IT-1850089

PATIENT
  Age: 77 Year
  Sex: Female

DRUGS (3)
  1. DOXORUBICINA TEVA 2 MG/ML CONCENTRATO PER SOLUZIONE PER INFUSIONE [Suspect]
     Active Substance: DOXORUBICIN
     Indication: NON-HODGKIN^S LYMPHOMA STAGE III
     Dosage: UNIT DOSE : 50 MG
     Route: 042
     Dates: start: 20200511, end: 20200511
  2. ENDOXAN BAXTER 500 MG POLVERE PER SOLUZIONE INIETTABILE [Suspect]
     Active Substance: CYCLOPHOSPHAMIDE
     Indication: NON-HODGKIN^S LYMPHOMA STAGE III
     Dosage: UNIT DOSE : 950 MG
     Route: 042
     Dates: start: 20200511, end: 20200511
  3. VELBE 10 MG POLVERE PER SOLUZIONE PER INFUSIONE [Suspect]
     Active Substance: VINBLASTINE SULFATE
     Indication: NON-HODGKIN^S LYMPHOMA STAGE III
     Dosage: UNIT DOSE : 1.7 MG
     Route: 042
     Dates: start: 20200511, end: 20200511

REACTIONS (2)
  - Mucosal inflammation [Recovering/Resolving]
  - Oesophageal candidiasis [Recovering/Resolving]

NARRATIVE: CASE EVENT DATE: 20200616
